FAERS Safety Report 7556209-1 (Version None)
Quarter: 2011Q2

REPORT INFORMATION
  Report Type: 
  Country: None (occurrence: None)
  Receive Date: 20110620
  Receipt Date: 20110607
  Transmission Date: 20111010
  Serious: Yes (Other)
  Sender: FDA-Public Use
  Company Number: US-CELGENEUS-163-21880-11061140

PATIENT

DRUGS (3)
  1. DEXAMETHASONE [Concomitant]
     Route: 065
  2. CLARITHROMYCIN [Concomitant]
     Route: 065
  3. REVLIMID [Suspect]
     Indication: MULTIPLE MYELOMA
     Route: 048

REACTIONS (5)
  - COLON CANCER [None]
  - PANCREATIC CARCINOMA [None]
  - SQUAMOUS CELL CARCINOMA [None]
  - METASTATIC MALIGNANT MELANOMA [None]
  - BASAL CELL CARCINOMA [None]
